FAERS Safety Report 25358615 (Version 1)
Quarter: 2025Q2

REPORT INFORMATION
  Report Type: Report from Study
  Country: MX (occurrence: MX)
  Receive Date: 20250526
  Receipt Date: 20250526
  Transmission Date: 20250717
  Serious: Yes (Other)
  Sender: NOVARTIS
  Company Number: MX-002147023-NVSC2025MX076765

PATIENT
  Age: 41 Year
  Sex: Female
  Weight: 64 kg

DRUGS (2)
  1. TASIGNA [Suspect]
     Active Substance: NILOTINIB
     Indication: Chronic myeloid leukaemia
     Dosage: 2 OF 200 MG (EVERY 12 HOURS)
     Route: 048
     Dates: start: 2022
  2. TASIGNA [Suspect]
     Active Substance: NILOTINIB
     Dosage: 2 OF 200 MG (EVERY 12 HOURS)
     Route: 048
     Dates: start: 202208

REACTIONS (15)
  - Autoimmune thyroiditis [Not Recovered/Not Resolved]
  - Asthmatic crisis [Recovered/Resolved]
  - Cough [Not Recovered/Not Resolved]
  - Bronchospasm [Recovered/Resolved]
  - Chondritis [Recovered/Resolved]
  - Rhinalgia [Recovered/Resolved]
  - Eosinophil count increased [Not Recovered/Not Resolved]
  - Paraesthesia [Not Recovered/Not Resolved]
  - Carbohydrate intolerance [Not Recovered/Not Resolved]
  - Blood glucose increased [Not Recovered/Not Resolved]
  - Dizziness [Not Recovered/Not Resolved]
  - Headache [Not Recovered/Not Resolved]
  - Asthma [Recovered/Resolved]
  - Rhinitis [Unknown]
  - Concomitant disease aggravated [Unknown]

NARRATIVE: CASE EVENT DATE: 20220801
